FAERS Safety Report 13638352 (Version 1)
Quarter: 2017Q2

REPORT INFORMATION
  Report Type: Spontaneous
  Country: US (occurrence: US)
  Receive Date: 20170609
  Receipt Date: 20170609
  Transmission Date: 20170830
  Serious: No
  Sender: FDA-Public Use
  Company Number: US-AMGEN-USASP2017032590

PATIENT
  Age: 24 Year
  Sex: Male

DRUGS (28)
  1. PURINETHOL [Concomitant]
     Active Substance: MERCAPTOPURINE
  2. ULTRAM [Concomitant]
     Active Substance: TRAMADOL HYDROCHLORIDE
     Dosage: 50 MG, AS NECESSARY
     Route: 048
     Dates: start: 20170105
  3. TESSALON [Concomitant]
     Active Substance: BENZONATATE
     Dosage: 100 MG, AS NECESSARY
     Route: 048
     Dates: start: 20170110
  4. G-CSF [Concomitant]
     Active Substance: GRANULOCYTE COLONY-STIMULATING FACTOR NOS
  5. ALLOPURINOL. [Concomitant]
     Active Substance: ALLOPURINOL
  6. ZOFRAN [Concomitant]
     Active Substance: ONDANSETRON HYDROCHLORIDE
     Dosage: 8 MG, AS NECESSARY
     Route: 042
     Dates: start: 20170101
  7. ROBITUSSIN DM [Concomitant]
     Active Substance: DEXTROMETHORPHAN HYDROBROMIDE\GUAIFENESIN
     Dosage: 5 ML, AS NECESSARY
     Route: 048
     Dates: start: 20170108
  8. CEPACOL EXTRA STRENGTH [Concomitant]
     Dosage: 1 DF, AS NECESSARY
     Route: 048
     Dates: start: 20170128
  9. FLUDARABINE [Concomitant]
     Active Substance: FLUDARABINE PHOSPHATE
  10. MERREM [Concomitant]
     Active Substance: MEROPENEM
     Dosage: .5 G, Q6H
     Route: 042
     Dates: start: 20170131
  11. VANCOCIN [Concomitant]
     Active Substance: VANCOMYCIN HYDROCHLORIDE
     Dosage: 1000 MG, Q8H
     Route: 042
     Dates: start: 20170131
  12. IDARUBICIN [Concomitant]
     Active Substance: IDARUBICIN
  13. BLINCYTO [Suspect]
     Active Substance: BLINATUMOMAB
     Indication: ACUTE LYMPHOCYTIC LEUKAEMIA
     Dosage: UNK
     Route: 065
     Dates: start: 201611
  14. PREDNISONE. [Concomitant]
     Active Substance: PREDNISONE
  15. PEPCID [Concomitant]
     Active Substance: FAMOTIDINE
     Dosage: 20 MG, BID
     Route: 048
     Dates: start: 20161230
  16. CLARITIN [Concomitant]
     Active Substance: LORATADINE
     Dosage: 10 MG, QD
     Route: 048
     Dates: start: 20170105
  17. ANIDULAFUNGIN [Concomitant]
     Active Substance: ANIDULAFUNGIN
  18. TORADOL [Concomitant]
     Active Substance: KETOROLAC TROMETHAMINE
     Dosage: 30 MG, AS NECESSARY
     Route: 042
     Dates: start: 20170202
  19. CYTARABINE. [Concomitant]
     Active Substance: CYTARABINE
  20. PHENERGAN [Concomitant]
     Active Substance: PROMETHAZINE HYDROCHLORIDE
     Dosage: 6.25 MG, AS NECESSARY
     Route: 042
     Dates: start: 20170101
  21. TYLENOL [Concomitant]
     Active Substance: ACETAMINOPHEN
     Dosage: 650 MG, AS NECESSARY
     Route: 048
     Dates: start: 20170105
  22. VITAMIN E [Concomitant]
     Active Substance: .ALPHA.-TOCOPHEROL
     Dosage: UNK UNK, AS NECESSARY
     Dates: start: 20170110
  23. ONCOVIN [Concomitant]
     Active Substance: VINCRISTINE SULFATE
  24. MARINOL [Concomitant]
     Active Substance: DRONABINOL
     Dosage: 5 MG, AS NECESSARY
     Route: 048
     Dates: start: 20170101
  25. LORAZEPAM. [Concomitant]
     Active Substance: LORAZEPAM
  26. METHOTREXATE. [Concomitant]
     Active Substance: METHOTREXATE
  27. MORPHINE [Concomitant]
     Active Substance: MORPHINE
     Dosage: 3 MG, AS NECESSARY
     Route: 042
     Dates: start: 20170113
  28. HYDREA [Concomitant]
     Active Substance: HYDROXYUREA
     Dosage: 1500 MG, BID
     Route: 048
     Dates: start: 20170130

REACTIONS (1)
  - Disease progression [Unknown]

NARRATIVE: CASE EVENT DATE: 201612
